FAERS Safety Report 16381681 (Version 1)
Quarter: 2019Q2

REPORT INFORMATION
  Report Type: Spontaneous
  Country: US (occurrence: US)
  Receive Date: 20190603
  Receipt Date: 20190603
  Transmission Date: 20190711
  Serious: No
  Sender: FDA-Public Use
  Company Number: US-BRISTOL-MYERS SQUIBB COMPANY-BMS-2019-053420

PATIENT
  Sex: Female

DRUGS (1)
  1. ORENCIA [Suspect]
     Active Substance: ABATACEPT
     Indication: PRODUCT USED FOR UNKNOWN INDICATION
     Dosage: 125 MG/ ML, QWK
     Route: 058

REACTIONS (7)
  - Cough [Unknown]
  - Asthenia [Unknown]
  - Fatigue [Unknown]
  - Sputum discoloured [Unknown]
  - Dyspnoea [Unknown]
  - Sinus pain [Unknown]
  - Night sweats [Unknown]
